FAERS Safety Report 15923554 (Version 2)
Quarter: 2019Q1

REPORT INFORMATION
  Report Type: Spontaneous
  Country: IT (occurrence: IT)
  Receive Date: 20190206
  Receipt Date: 20190212
  Transmission Date: 20190417
  Serious: Yes (Life-Threatening)
  Sender: FDA-Public Use
  Company Number: IT-ACCORD-105366

PATIENT
  Age: 79 Year
  Sex: Female

DRUGS (1)
  1. METHOTREXATE. [Suspect]
     Active Substance: METHOTREXATE
     Indication: RHEUMATOID ARTHRITIS
     Dosage: SHE HAD TAKEN 15 MG/DAY MTX FOR 8 DAYS

REACTIONS (12)
  - Thrombocytopenia [Recovering/Resolving]
  - Stomatitis [Recovering/Resolving]
  - Agranulocytosis [Recovering/Resolving]
  - Odynophagia [Unknown]
  - Blood folate decreased [Unknown]
  - Erythema [Recovering/Resolving]
  - Subarachnoid haemorrhage [Unknown]
  - Cerebral haematoma [Unknown]
  - Skin erosion [Unknown]
  - Product administration error [Unknown]
  - Anaemia [Recovering/Resolving]
  - Leukopenia [Recovering/Resolving]
